FAERS Safety Report 6884279-2 (Version None)
Quarter: 2010Q3

REPORT INFORMATION
  Report Type: 
  Country: None (occurrence: None)
  Receive Date: 20100729
  Receipt Date: 20070531
  Transmission Date: 20110219
  Serious: No
  Sender: FDA-Public Use
  Company Number: US-PFIZER INC-2007045156

PATIENT
  Sex: Female
  Weight: 50.909 kg

DRUGS (6)
  1. CELEBREX [Suspect]
     Indication: BACK PAIN
  2. CELEBREX [Suspect]
     Indication: BURSITIS
  3. ANTIBIOTICS [Suspect]
     Indication: SKIN INFECTION
     Dates: start: 20070501, end: 20070501
  4. PREMARIN [Concomitant]
  5. NORVASC [Concomitant]
  6. INDAPAMIDE [Concomitant]

REACTIONS (3)
  - ILL-DEFINED DISORDER [None]
  - PRURITUS [None]
  - SKIN INFECTION [None]
